FAERS Safety Report 5398737-3 (Version None)
Quarter: 2007Q3

REPORT INFORMATION
  Report Type: 
  Country: None (occurrence: None)
  Receive Date: 20070725
  Receipt Date: 20070705
  Transmission Date: 20080115
  Serious: Yes (Death)
  Sender: FDA-Public Use
  Company Number: D-07-0057

PATIENT
  Age: 51 Year
  Sex: Male

DRUGS (3)
  1. AMANTADINE CAPSULES, 100 MG, (USL) [Suspect]
     Dosage: 100 MG, BID, PO
     Route: 048
  2. NOVANTRONE [Suspect]
     Indication: SECONDARY PROGRESSIVE MULTIPLE SCLEROSIS
     Dosage: 24 MG, Q 3 MOS, IV
     Route: 042
     Dates: start: 20020118, end: 20031111
  3. BACLOFEN [Concomitant]

REACTIONS (1)
  - MYOCARDIAL INFARCTION [None]
